FAERS Safety Report 18716642 (Version 1)
Quarter: 2021Q1

REPORT INFORMATION
  Report Type: Spontaneous
  Country: US (occurrence: US)
  Receive Date: 20210107
  Receipt Date: 20210107
  Transmission Date: 20210419
  Serious: Yes (Hospitalization)
  Sender: FDA-Public Use
  Company Number: None

PATIENT
  Age: 80 Year
  Sex: Male

DRUGS (8)
  1. ESBRIET [Suspect]
     Active Substance: PIRFENIDONE
     Indication: IDIOPATHIC PULMONARY FIBROSIS
     Route: 048
     Dates: start: 20170322
  2. ALBUTEROL. [Suspect]
     Active Substance: ALBUTEROL
  3. METOPROLOL. [Suspect]
     Active Substance: METOPROLOL
  4. FINASTERIDE. [Suspect]
     Active Substance: FINASTERIDE
  5. PREDNISONE. [Suspect]
     Active Substance: PREDNISONE
  6. SIMVASTATIN. [Suspect]
     Active Substance: SIMVASTATIN
  7. DOXAZOSIN [Suspect]
     Active Substance: DOXAZOSIN MESYLATE
  8. MULTI?VITAMIN [Suspect]
     Active Substance: .ALPHA.-TOCOPHEROL ACETATE, DL-\ASCORBIC ACID\CYANOCOBALAMIN\FLUORIDE ION\FOLIC ACID\NIACIN\PYRIDOXINE\RIBOFLAVIN\THIAMINE\VITAMIN A\VITAMIN D

REACTIONS (2)
  - Hospitalisation [None]
  - Cardiac disorder [None]

NARRATIVE: CASE EVENT DATE: 20210106
